FAERS Safety Report 6913190-3 (Version None)
Quarter: 2010Q3

REPORT INFORMATION
  Report Type: 
  Country: None (occurrence: None)
  Receive Date: 20100808
  Receipt Date: 20100729
  Transmission Date: 20110219
  Serious: Yes (Hospitalization, Other)
  Sender: FDA-Public Use
  Company Number: US-BRISTOL-MYERS SQUIBB COMPANY-15183783

PATIENT
  Age: 59 Year
  Sex: Female

DRUGS (15)
  1. CARBOPLATIN [Suspect]
     Indication: ENDOMETRIAL CANCER
  2. TAXOL [Suspect]
     Indication: ENDOMETRIAL CANCER
  3. MEGACE [Suspect]
     Indication: ENDOMETRIAL CANCER
     Route: 048
     Dates: start: 20100401, end: 20100101
  4. IBUPROFEN [Suspect]
     Indication: PAIN
  5. TAMOXIFEN [Suspect]
     Indication: LUNG NEOPLASM MALIGNANT
     Dates: start: 20100401, end: 20100101
  6. MEGESTROL [Suspect]
  7. XANAX [Suspect]
     Indication: ANXIETY
  8. BENADRYL [Concomitant]
     Dosage: ALSO TOPICAL
     Route: 048
  9. MORPHINE [Concomitant]
  10. ALBUTEROL SULATE [Concomitant]
  11. ASMANEX TWISTHALER [Concomitant]
  12. ANTIBIOTICS [Concomitant]
  13. ASCORBIC ACID [Concomitant]
  14. BENADRYL [Concomitant]
  15. ATIVAN [Concomitant]

REACTIONS (12)
  - ARTHRITIS [None]
  - BACK PAIN [None]
  - BLOOD PRESSURE INCREASED [None]
  - FEELING ABNORMAL [None]
  - FEELING COLD [None]
  - HAEMORRHOIDS [None]
  - HYPOACUSIS [None]
  - MALIGNANT NEOPLASM PROGRESSION [None]
  - MENOPAUSAL SYMPTOMS [None]
  - NAIL DISORDER [None]
  - PNEUMONITIS [None]
  - SOMNOLENCE [None]
